FAERS Safety Report 8124083-0 (Version None)
Quarter: 2012Q1

REPORT INFORMATION
  Report Type: 
  Country: None (occurrence: None)
  Receive Date: 20120209
  Receipt Date: 20120206
  Transmission Date: 20120608
  Serious: No
  Sender: FDA-Public Use
  Company Number: US-PFIZER INC-2012011034

PATIENT
  Sex: Male
  Weight: 79.365 kg

DRUGS (6)
  1. LIDODERM [Suspect]
     Indication: SCIATICA
     Dosage: UNK
     Route: 062
  2. GLYBURIDE [Concomitant]
     Indication: DIABETES MELLITUS
     Dosage: HALF TABLET, 2X/DAY
     Route: 048
  3. FLECTOR [Suspect]
     Indication: SCIATICA
     Dosage: UNK
     Route: 062
     Dates: start: 20110601
  4. METFORMIN [Concomitant]
     Indication: DIABETES MELLITUS
     Dosage: 1000 MG, 2X/DAY
  5. CARVEDILOL [Concomitant]
     Indication: HYPERTENSION
     Dosage: UNK
  6. AMLODIPINE [Concomitant]
     Indication: HYPERTENSION
     Dosage: 5 MG, DAILY

REACTIONS (3)
  - VISION BLURRED [None]
  - DRUG ADMINISTRATION ERROR [None]
  - DIPLOPIA [None]
